FAERS Safety Report 6600675-2 (Version None)
Quarter: 2010Q1

REPORT INFORMATION
  Report Type: 
  Country: None (occurrence: None)
  Receive Date: 20100223
  Receipt Date: 20100223
  Transmission Date: 20100710
  Serious: No
  Sender: FDA-Public Use
  Company Number: None

PATIENT
  Age: 50 Year
  Sex: Female
  Weight: 40.8237 kg

DRUGS (1)
  1. CYMBALTA [Suspect]
     Indication: PAIN
     Dosage: DAILY 1 PO
     Route: 048
     Dates: start: 20090301, end: 20100222

REACTIONS (8)
  - CONFUSIONAL STATE [None]
  - DISTURBANCE IN ATTENTION [None]
  - ERYTHEMA [None]
  - MALAISE [None]
  - NIGHT SWEATS [None]
  - PRURITUS [None]
  - TINNITUS [None]
  - VOMITING [None]
